FAERS Safety Report 9224702 (Version 1)
Quarter: 2013Q1

REPORT INFORMATION
  Report Type: Spontaneous
  Country: US (occurrence: None)
  Receive Date: 20120917
  Receipt Date: 20120917
  Transmission Date: 20140127
  Serious: No
  Sender: FDA-Public Use
  Company Number: 2011SP059382

PATIENT
  Age: 31 Year
  Sex: Female
  Weight: 67.59 kg

DRUGS (1)
  1. IMPLANON [Suspect]
     Indication: CONTRACEPTION
     Dates: start: 200807

REACTIONS (3)
  - Incorrect drug administration duration [None]
  - Implant site scar [None]
  - Medical device complication [None]
